APPROVED DRUG PRODUCT: FLUCONAZOLE
Active Ingredient: FLUCONAZOLE
Strength: 200MG
Dosage Form/Route: TABLET;ORAL
Application: A074681 | Product #004
Applicant: TEVA PHARMACEUTICALS USA INC
Approved: Jul 29, 2004 | RLD: No | RS: No | Type: DISCN